FAERS Safety Report 9082957 (Version 1)
Quarter: 2013Q1

REPORT INFORMATION
  Report Type: Report from Study
  Country: US (occurrence: US)
  Receive Date: 20130131
  Receipt Date: 20130131
  Transmission Date: 20140127
  Serious: No
  Sender: FDA-Public Use
  Company Number: US-ABBOTT-12P-163-0989594-00

PATIENT
  Age: 33 Year
  Sex: Female

DRUGS (3)
  1. HUMIRA [Suspect]
     Indication: PSORIATIC ARTHROPATHY
     Dosage: FIRST LOADING DOSE ON DAY 1
     Dates: start: 201209, end: 201209
  2. HUMIRA [Suspect]
     Dosage: ON DAY 8
  3. HUMIRA [Suspect]

REACTIONS (4)
  - Fatigue [Unknown]
  - Injection site pain [Unknown]
  - Injection site erythema [Unknown]
  - Dizziness [Unknown]
